FAERS Safety Report 9278546 (Version 1)
Quarter: 2013Q2

REPORT INFORMATION
  Report Type: Spontaneous
  Country: US (occurrence: US)
  Receive Date: 20130508
  Receipt Date: 20130508
  Transmission Date: 20140414
  Serious: No
  Sender: FDA-Public Use
  Company Number: US-PFIZER INC-2013139698

PATIENT
  Age: 43 Year
  Sex: Female
  Weight: 58.5 kg

DRUGS (1)
  1. LEVOTHYROXINE SODIUM [Suspect]
     Indication: THYROID CANCER
     Dosage: 112 UG, 1X/DAY
     Dates: start: 2013, end: 2013

REACTIONS (2)
  - Alopecia [Recovered/Resolved]
  - Thyroid function test abnormal [Recovered/Resolved]
